FAERS Safety Report 4333023-1 (Version None)
Quarter: 2004Q2

REPORT INFORMATION
  Report Type: 
  Country: None (occurrence: None)
  Receive Date: 20040406
  Receipt Date: 20040130
  Transmission Date: 20050107
  Serious: Yes (Hospitalization, Other)
  Sender: FDA-Public Use
  Company Number: PHEH2004US01406

PATIENT
  Age: 43 Year
  Sex: Female
  Weight: 59 kg

DRUGS (11)
  1. ZOMETA [Suspect]
     Indication: METASTASES TO BONE
     Dosage: 4 MG EVERY 3-6 WEEKS
     Route: 042
     Dates: start: 20020314, end: 20040114
  2. DECADRON [Concomitant]
     Indication: ANTIEMETIC SUPPORTIVE CARE
     Route: 042
     Dates: start: 20020218, end: 20031113
  3. TAXOTERE [Concomitant]
  4. HERCEPTIN [Concomitant]
  5. XELODA [Concomitant]
  6. NAVELBINE [Concomitant]
  7. GEMZAR [Concomitant]
  8. ARIMIDEX [Concomitant]
  9. LUPRON [Concomitant]
  10. HYDROCODONE [Concomitant]
     Dosage: 7.5 MG, UNK
     Dates: start: 20030201
  11. LISINOPRIL [Concomitant]

REACTIONS (18)
  - ASEPTIC NECROSIS BONE [None]
  - HAEMATOCRIT DECREASED [None]
  - HAEMOGLOBIN DECREASED [None]
  - IMMUNOSUPPRESSION [None]
  - IMPAIRED HEALING [None]
  - LACERATION [None]
  - LOCALISED INFECTION [None]
  - OEDEMA [None]
  - ORAL DYSAESTHESIA [None]
  - OSTEOMYELITIS [None]
  - OSTEONECROSIS [None]
  - POST PROCEDURAL PAIN [None]
  - POSTOPERATIVE WOUND COMPLICATION [None]
  - STITCH ABSCESS [None]
  - TOOTH DISORDER [None]
  - TOOTH EXTRACTION [None]
  - VESTIBULAR DISORDER [None]
  - WOUND DEHISCENCE [None]
